FAERS Safety Report 23057053 (Version 4)
Quarter: 2024Q1

REPORT INFORMATION
  Report Type: Spontaneous
  Country: US (occurrence: US)
  Receive Date: 20231012
  Receipt Date: 20240220
  Transmission Date: 20240410
  Serious: Yes (Disabling, Other)
  Sender: FDA-Public Use
  Company Number: US-TEVA-2023-US-2934873

PATIENT
  Age: 52 Year
  Sex: Female

DRUGS (6)
  1. DOCETAXEL [Suspect]
     Active Substance: DOCETAXEL\DOCETAXEL ANHYDROUS
     Indication: Breast cancer female
     Dosage: TIME INTERVAL: CYCLICAL: C5 TO C10?13-DEC-2021,20-DEC-2021, 24-JAN-2022
     Route: 042
     Dates: start: 20211213, end: 20220124
  2. DOCETAXEL [Suspect]
     Active Substance: DOCETAXEL\DOCETAXEL ANHYDROUS
     Indication: Breast cancer female
     Dosage: TIME INTERVAL: CYCLICAL: C1 TO C4?15-NOV-2021,22-NOV-2021,30-NOV-2021, 06-DEC-2021
     Route: 042
     Dates: start: 20211115, end: 20211206
  3. AZITHROMYCIN [Concomitant]
     Active Substance: AZITHROMYCIN
     Indication: Product used for unknown indication
     Route: 065
     Dates: start: 2005
  4. HERCEPTIN [Suspect]
     Active Substance: TRASTUZUMAB
     Indication: Breast cancer female
     Route: 042
     Dates: start: 20211108
  5. TAXOL [Suspect]
     Active Substance: PACLITAXEL
     Indication: Breast cancer female
     Route: 065
     Dates: start: 20211108
  6. FEMARA [Concomitant]
     Active Substance: LETROZOLE
     Indication: Product used for unknown indication
     Route: 065
     Dates: start: 2005

REACTIONS (22)
  - Lacrimal structure injury [Unknown]
  - Dacryostenosis acquired [Unknown]
  - Flushing [Recovered/Resolved]
  - Chest discomfort [Recovered/Resolved]
  - Nail disorder [Unknown]
  - Pain in extremity [Unknown]
  - Anaemia [Unknown]
  - Skin hyperpigmentation [Unknown]
  - Skin hypertrophy [Unknown]
  - Pruritus [Unknown]
  - Neutropenia [Recovering/Resolving]
  - Agranulocytosis [Recovering/Resolving]
  - Rash [Recovering/Resolving]
  - Skin discolouration [Not Recovered/Not Resolved]
  - Dry skin [Not Recovered/Not Resolved]
  - Skin toxicity [Recovering/Resolving]
  - Lacrimation increased [Not Recovered/Not Resolved]
  - Ocular hyperaemia [Not Recovered/Not Resolved]
  - Visual impairment [Not Recovered/Not Resolved]
  - Eye irritation [Not Recovered/Not Resolved]
  - Dry eye [Unknown]
  - Eye pruritus [Not Recovered/Not Resolved]

NARRATIVE: CASE EVENT DATE: 20210101
